FAERS Safety Report 10177846 (Version 1)
Quarter: 2014Q2

REPORT INFORMATION
  Report Type: Spontaneous
  Country: US (occurrence: US)
  Receive Date: 20140516
  Receipt Date: 20140516
  Transmission Date: 20141212
  Serious: Yes (Other)
  Sender: FDA-Public Use
  Company Number: US-AMGEN-USASP2014034785

PATIENT
  Age: 70 Year
  Sex: Female

DRUGS (1)
  1. PROLIA [Suspect]
     Indication: OSTEOPOROSIS POSTMENOPAUSAL
     Dosage: UNK
     Route: 065
     Dates: start: 2013

REACTIONS (8)
  - Dyspnoea [Recovered/Resolved]
  - Lethargy [Unknown]
  - Influenza [Unknown]
  - Peripheral swelling [Unknown]
  - Headache [Unknown]
  - Fatigue [Unknown]
  - Nasopharyngitis [Unknown]
  - Rash [Unknown]
